FAERS Safety Report 20929056 (Version 3)
Quarter: 2022Q2

REPORT INFORMATION
  Report Type: Spontaneous
  Country: US (occurrence: US)
  Receive Date: 20220608
  Receipt Date: 20220622
  Transmission Date: 20220721
  Serious: Yes (Hospitalization)
  Sender: FDA-Public Use
  Company Number: US-SA-SAC20220602001280

PATIENT
  Age: 60 Year
  Sex: Male

DRUGS (2)
  1. DUPIXENT [Suspect]
     Active Substance: DUPILUMAB
     Indication: Product used for unknown indication
     Dosage: 300 MG
     Route: 058
     Dates: start: 202111
  2. DUPIXENT [Suspect]
     Active Substance: DUPILUMAB
     Dosage: 300 MG
     Route: 058
     Dates: start: 202112

REACTIONS (6)
  - Pyrexia [Unknown]
  - Asthma [Not Recovered/Not Resolved]
  - Hospitalisation [Not Recovered/Not Resolved]
  - Oxygen saturation decreased [Not Recovered/Not Resolved]
  - Muscle twitching [Unknown]
  - Speech disorder [Unknown]

NARRATIVE: CASE EVENT DATE: 20220501
